FAERS Safety Report 5232585-X (Version None)
Quarter: 2007Q1

REPORT INFORMATION
  Report Type: 
  Country: None (occurrence: None)
  Receive Date: 20070207
  Receipt Date: 20070125
  Transmission Date: 20070707
  Serious: Yes (Other)
  Sender: FDA-Public Use
  Company Number: CA-ROCHE-480093

PATIENT
  Age: 53 Year
  Sex: Male

DRUGS (20)
  1. ZENAPAX [Suspect]
     Indication: DRUG USE FOR UNKNOWN INDICATION
     Dosage: FIRST DOSE.
     Route: 042
  2. MYCOPHENOLATE MOFETIL [Suspect]
     Indication: DRUG USE FOR UNKNOWN INDICATION
     Route: 048
  3. CYCLOSPORINE [Suspect]
     Indication: DRUG USE FOR UNKNOWN INDICATION
     Route: 048
  4. PREDNISONE [Suspect]
     Indication: DRUG USE FOR UNKNOWN INDICATION
     Route: 048
  5. PANTOPRAZOLE SODIUM [Concomitant]
     Dosage: DOSAGE FORM REPORTED AS ENT (EARS NOSE THROAT).
  6. LIPITOR [Concomitant]
     Route: 065
  7. ARANESP [Concomitant]
     Route: 065
  8. NORVASC [Concomitant]
  9. VALCYTE [Concomitant]
  10. THIAZIDES [Concomitant]
  11. ACTONEL [Concomitant]
     Route: 065
  12. CALCIUM [Concomitant]
  13. PHOSPHATE NOVARTIS [Concomitant]
  14. SOLU-CORTEF [Concomitant]
  15. CATAPRES [Concomitant]
  16. ATACAND [Concomitant]
  17. CLAVULIN [Concomitant]
  18. LASIX [Concomitant]
  19. LOPRESSOR [Concomitant]
  20. SEPTRA [Concomitant]

REACTIONS (6)
  - BACTERIAL INFECTION [None]
  - DEHYDRATION [None]
  - DIARRHOEA [None]
  - FLANK PAIN [None]
  - GASTROENTERITIS [None]
  - TRANSPLANT REJECTION [None]
